FAERS Safety Report 25653225 (Version 1)
Quarter: 2025Q3

REPORT INFORMATION
  Report Type: Spontaneous
  Country: CN (occurrence: CN)
  Receive Date: 20250807
  Receipt Date: 20250807
  Transmission Date: 20251021
  Serious: Yes (Hospitalization, Other)
  Sender: Y-MABS THERAPEUTICS
  Company Number: CN-Y-MABS THERAPEUTICS, INC.-SPO2025-CN-002132

PATIENT

DRUGS (8)
  1. DANYELZA [Suspect]
     Active Substance: NAXITAMAB-GQGK
     Indication: Neuroblastoma
     Route: 042
     Dates: start: 20250707, end: 20250707
  2. DANYELZA [Suspect]
     Active Substance: NAXITAMAB-GQGK
     Route: 042
     Dates: start: 20250709, end: 20250709
  3. DANYELZA [Suspect]
     Active Substance: NAXITAMAB-GQGK
     Route: 042
     Dates: start: 20250714, end: 20250714
  4. DANYELZA [Suspect]
     Active Substance: NAXITAMAB-GQGK
     Route: 042
     Dates: start: 20250716, end: 20250716
  5. CYCLOPHOSPHAMIDE [Concomitant]
     Active Substance: CYCLOPHOSPHAMIDE
     Indication: Neuroblastoma
     Route: 042
     Dates: start: 20250706, end: 20250706
  6. CYCLOPHOSPHAMIDE [Concomitant]
     Active Substance: CYCLOPHOSPHAMIDE
     Route: 042
     Dates: start: 20250708, end: 20250710
  7. TOPOTECAN HYDROCHLORIDE [Concomitant]
     Active Substance: TOPOTECAN HYDROCHLORIDE
     Indication: Neuroblastoma
     Route: 042
     Dates: start: 20250706, end: 20250706
  8. TOPOTECAN HYDROCHLORIDE [Concomitant]
     Active Substance: TOPOTECAN HYDROCHLORIDE
     Route: 042
     Dates: start: 20250708, end: 20250710

REACTIONS (4)
  - Myelosuppression [Unknown]
  - Off label use [Recovered/Resolved]
  - Rash [Unknown]
  - Pain [Unknown]

NARRATIVE: CASE EVENT DATE: 20250715
